FAERS Safety Report 25279590 (Version 6)
Quarter: 2025Q3

REPORT INFORMATION
  Report Type: Report from Study
  Country: US (occurrence: US)
  Receive Date: 20250507
  Receipt Date: 20250915
  Transmission Date: 20251020
  Serious: No
  Sender: DECIPHERA PHARMACEUTICALS
  Company Number: US-DECIPHERA PHARMACEUTICALS LLC-2025US000374

PATIENT
  Age: 42 Year
  Sex: Male

DRUGS (4)
  1. ROMVIMZA [Suspect]
     Active Substance: VIMSELTINIB
     Indication: Malignant connective tissue neoplasm
     Dosage: 30 MILLIGRAM, TWICE WEEKLY
     Route: 048
     Dates: start: 20250410, end: 2025
  2. ROMVIMZA [Suspect]
     Active Substance: VIMSELTINIB
     Indication: Soft tissue sarcoma
     Dosage: 30 MILLIGRAM, TWICE WEEKLY (1 CAPSULE ORAL TWICE WEEKLY, 73 HRS APART))
     Route: 048
     Dates: start: 2025
  3. ROMVIMZA [Suspect]
     Active Substance: VIMSELTINIB
     Indication: Giant cell tumour of tendon sheath
  4. ROMVIMZA [Suspect]
     Active Substance: VIMSELTINIB
     Indication: Giant cell tumour of tendon sheath

REACTIONS (10)
  - Anxiety [Unknown]
  - Ligament sprain [Unknown]
  - Pain in extremity [Unknown]
  - Pain [Recovering/Resolving]
  - Peripheral swelling [Unknown]
  - Blood creatine phosphokinase increased [Unknown]
  - Pruritus [Unknown]
  - Fatigue [Not Recovered/Not Resolved]
  - Product dose omission issue [Unknown]
  - Product physical issue [Unknown]

NARRATIVE: CASE EVENT DATE: 20250101
